FAERS Safety Report 5032042-X (Version None)
Quarter: 2006Q2

REPORT INFORMATION
  Report Type: 
  Country: None (occurrence: None)
  Receive Date: 20060621
  Receipt Date: 20060619
  Transmission Date: 20061013
  Serious: Yes (Hospitalization)
  Sender: FDA-Public Use
  Company Number: US-MERCK-0606USA03337

PATIENT
  Age: 89 Year
  Sex: Female

DRUGS (4)
  1. FOSAMAX [Suspect]
     Indication: OSTEOPOROSIS
     Route: 048
     Dates: start: 19960101, end: 20060101
  2. HYDROCHLOROTHIAZIDE [Concomitant]
     Route: 065
  3. ATENOLOL [Concomitant]
     Route: 065
  4. BENICAR [Concomitant]
     Route: 065

REACTIONS (2)
  - BODY HEIGHT DECREASED [None]
  - WRIST FRACTURE [None]
